FAERS Safety Report 5893057-2 (Version None)
Quarter: 2008Q3

REPORT INFORMATION
  Report Type: 
  Country: None (occurrence: None)
  Receive Date: 20080923
  Receipt Date: 20080605
  Transmission Date: 20090109
  Serious: No
  Sender: FDA-Public Use
  Company Number: US-ASTRAZENECA-2006UW22893

PATIENT
  Age: 42 Year
  Sex: Female
  Weight: 82.7 kg

DRUGS (6)
  1. SEROQUEL [Suspect]
     Indication: DEPRESSION
     Dosage: 100 MG - 600 MG
     Route: 048
     Dates: start: 19990101, end: 20060101
  2. ABILIFY [Concomitant]
     Dates: start: 20050101
  3. LAMICPAL [Concomitant]
  4. KLONOPIN [Concomitant]
  5. ATIVAN [Concomitant]
  6. NEURONTIN [Concomitant]

REACTIONS (4)
  - BLOOD CHOLESTEROL INCREASED [None]
  - BLOOD TRIGLYCERIDES INCREASED [None]
  - DIABETES MELLITUS [None]
  - OBESITY [None]
